FAERS Safety Report 14188318 (Version 1)
Quarter: 2017Q4

REPORT INFORMATION
  Report Type: Spontaneous
  Country: CN (occurrence: CN)
  Receive Date: 20171114
  Receipt Date: 20171114
  Transmission Date: 20180321
  Serious: Yes (Other)
  Sender: FDA-Public Use
  Company Number: CN-ABBVIE-17P-035-2163952-00

PATIENT
  Age: 62 Year
  Sex: Female

DRUGS (7)
  1. EDARAVONE [Concomitant]
     Active Substance: EDARAVONE
     Indication: PRODUCT USED FOR UNKNOWN INDICATION
     Dates: start: 20170830, end: 20170905
  2. ESOMEPRAZOLE SODIUM. [Concomitant]
     Active Substance: ESOMEPRAZOLE SODIUM
     Indication: PRODUCT USED FOR UNKNOWN INDICATION
     Dates: start: 20170830, end: 20170904
  3. ETIMICIN [Concomitant]
     Active Substance: ETIMICIN SULFATE
     Indication: PRODUCT USED FOR UNKNOWN INDICATION
     Dates: start: 20170830, end: 20170904
  4. SODIUM VALPROATE [Suspect]
     Active Substance: VALPROATE SODIUM
     Indication: EPILEPSY
     Route: 042
     Dates: start: 20170830, end: 20170903
  5. CEFTRIAXONE SODIUM. [Concomitant]
     Active Substance: CEFTRIAXONE SODIUM
     Indication: PRODUCT USED FOR UNKNOWN INDICATION
     Dates: start: 20170830, end: 20170830
  6. SODIUM CHLORIDE. [Concomitant]
     Active Substance: SODIUM CHLORIDE
     Indication: PRODUCT USED FOR UNKNOWN INDICATION
     Dates: start: 20170830, end: 20170905
  7. CEFMETAZOLE [Concomitant]
     Active Substance: CEFMETAZOLE
     Indication: PRODUCT USED FOR UNKNOWN INDICATION
     Dates: start: 20170831, end: 20170904

REACTIONS (1)
  - Mouth ulceration [Recovering/Resolving]

NARRATIVE: CASE EVENT DATE: 20170903
